FAERS Safety Report 23231455 (Version 1)
Quarter: 2023Q4

REPORT INFORMATION
  Report Type: Spontaneous
  Country: US (occurrence: US)
  Receive Date: 20231127
  Receipt Date: 20231127
  Transmission Date: 20240110
  Serious: No
  Sender: FDA-Public Use
  Company Number: US-AVADEL CNS PHARMACEUTICALS, LLC-2023AVA00187

PATIENT
  Age: 30 Year
  Sex: Female

DRUGS (1)
  1. LUMRYZ [Suspect]
     Active Substance: SODIUM OXYBATE
     Dosage: 7.5 G
     Dates: start: 20230913

REACTIONS (7)
  - Insomnia [Recovering/Resolving]
  - Middle insomnia [Recovering/Resolving]
  - Asthenia [Recovered/Resolved]
  - Sluggishness [Recovered/Resolved]
  - Brain fog [Recovered/Resolved]
  - Paraesthesia [Recovered/Resolved]
  - Headache [Recovering/Resolving]

NARRATIVE: CASE EVENT DATE: 20230901
